FAERS Safety Report 15367373 (Version 1)
Quarter: 2018Q3

REPORT INFORMATION
  Report Type: Spontaneous
  Country: US (occurrence: US)
  Receive Date: 20180904
  Receipt Date: 20180904
  Transmission Date: 20181010
  Serious: Yes (Other)
  Sender: FDA-Public Use
  Company Number: None

PATIENT
  Age: 55 Year
  Sex: Female
  Weight: 74.25 kg

DRUGS (4)
  1. CHOLESTETOL MED [Concomitant]
  2. ZOLPIDAN [Concomitant]
  3. CHANTIX [Suspect]
     Active Substance: VARENICLINE TARTRATE
     Indication: SMOKING CESSATION THERAPY
     Dosage: ?          QUANTITY:1 TABLET(S);?
     Route: 048
     Dates: start: 20180707, end: 20180817
  4. ATENOLOL. [Concomitant]
     Active Substance: ATENOLOL

REACTIONS (31)
  - Loss of consciousness [None]
  - Fear [None]
  - Feeling abnormal [None]
  - Memory impairment [None]
  - Tremor [None]
  - Disturbance in attention [None]
  - Depression [None]
  - Social avoidant behaviour [None]
  - Panic reaction [None]
  - Judgement impaired [None]
  - Asthenia [None]
  - Confusional state [None]
  - Oedema peripheral [None]
  - Crying [None]
  - Balance disorder [None]
  - Abnormal behaviour [None]
  - Road traffic accident [None]
  - Abdominal pain [None]
  - Anxiety [None]
  - Fatigue [None]
  - Abnormal sleep-related event [None]
  - Alcohol use [None]
  - Nausea [None]
  - Oedema [None]
  - Peripheral venous disease [None]
  - Hallucination, visual [None]
  - Palpitations [None]
  - Fall [None]
  - Photopsia [None]
  - Sensory disturbance [None]
  - Insomnia [None]

NARRATIVE: CASE EVENT DATE: 20180816
